FAERS Safety Report 5235373-3 (Version None)
Quarter: 2007Q1

REPORT INFORMATION
  Report Type: 
  Country: None (occurrence: None)
  Receive Date: 20061208
  Receipt Date: 20060707
  Transmission Date: 20070707
  Serious: Yes (Other)
  Sender: FDA-Public Use
  Company Number: 2006UW14073

PATIENT
  Age: 59 Year
  Sex: Female
  Weight: 57.606 kg

DRUGS (3)
  1. CRESTOR [Suspect]
     Indication: BLOOD CHOLESTEROL INCREASED
     Dosage: 20 MG QD PO
     Route: 048
  2. CRESTOR [Suspect]
     Indication: BLOOD CHOLESTEROL INCREASED
     Dosage: 10 MG QD PO
     Route: 048
     Dates: start: 20050101
  3. EVISTA [Concomitant]

REACTIONS (3)
  - FEELING HOT [None]
  - MUSCLE SPASMS [None]
  - PAIN IN EXTREMITY [None]
